FAERS Safety Report 4678969-X (Version None)
Quarter: 2005Q2

REPORT INFORMATION
  Report Type: 
  Country: None (occurrence: None)
  Receive Date: 20050525
  Receipt Date: 20050216
  Transmission Date: 20051028
  Serious: No
  Sender: FDA-Public Use
  Company Number: 212504

PATIENT
  Age: 45 Year
  Sex: Female
  Weight: 81.6 kg

DRUGS (1)
  1. RAPTIVA [Suspect]
     Indication: DYSHIDROSIS
     Dosage: 80 MG, 1/WEEK, SUBCUTANEOUS
     Route: 058
     Dates: start: 20040501, end: 20041020

REACTIONS (1)
  - LICHEN PLANUS [None]
